FAERS Safety Report 18495239 (Version 1)
Quarter: 2020Q4

REPORT INFORMATION
  Report Type: Spontaneous
  Country: US (occurrence: US)
  Receive Date: 20201112
  Receipt Date: 20201112
  Transmission Date: 20210114
  Serious: Yes (Other)
  Sender: FDA-Public Use
  Company Number: US-NODEN PHARMA DAC_NOD-2019-000177

PATIENT
  Sex: Male

DRUGS (3)
  1. LOTREL                             /01388302/ [Suspect]
     Active Substance: LOTEPREDNOL ETABONATE
     Indication: BLOOD PRESSURE MEASUREMENT
     Dosage: 10/40, UNK
     Route: 065
  2. CHLORTHALIDONE. [Suspect]
     Active Substance: CHLORTHALIDONE
     Indication: PRODUCT USED FOR UNKNOWN INDICATION
     Dosage: 25 MILLIGRAM, UNK
     Route: 065
  3. TEKTURNA [Suspect]
     Active Substance: ALISKIREN HEMIFUMARATE
     Indication: BLOOD PRESSURE MEASUREMENT
     Dosage: 150/12.5 MG, UNK
     Route: 065

REACTIONS (3)
  - Rash [Unknown]
  - Pruritus [Unknown]
  - Drug interaction [Unknown]
